FAERS Safety Report 4798022-4 (Version None)
Quarter: 2005Q3

REPORT INFORMATION
  Report Type: 
  Country: None (occurrence: None)
  Receive Date: 20050929
  Receipt Date: 20050815
  Transmission Date: 20060218
  Serious: No
  Sender: FDA-Public Use
  Company Number: 05P-163-0308387

PATIENT
  Sex: Female

DRUGS (1)
  1. HUMIRA                     (ADALIMUMAB) [Suspect]
     Dosage: 40 MG, SUBCUTANEOUS
     Route: 058

REACTIONS (4)
  - EYE PAIN [None]
  - FATIGUE [None]
  - HEADACHE [None]
  - VISUAL DISTURBANCE [None]
